FAERS Safety Report 4299067-3 (Version None)
Quarter: 2004Q1

REPORT INFORMATION
  Report Type: 
  Country: None (occurrence: None)
  Receive Date: 20040217
  Receipt Date: 20040209
  Transmission Date: 20041129
  Serious: Yes (Life-Threatening, Hospitalization)
  Sender: FDA-Public Use
  Company Number: 7358

PATIENT
  Age: 79 Year
  Sex: Female

DRUGS (7)
  1. METHOTREXATE [Suspect]
     Indication: ARTHRITIS
     Dosage: 20 MG WEEKLY  ; PO
     Route: 048
     Dates: start: 20000301, end: 20030201
  2. PREDNISOLONE [Concomitant]
  3. VERAPAMIL HYDROCHLORIDE [Concomitant]
  4. DIGOXIN [Concomitant]
  5. WARFARIN [Concomitant]
  6. TIMOLOL MALEATE [Concomitant]
  7. LATANOPROST [Concomitant]

REACTIONS (5)
  - DYSPNOEA [None]
  - FATIGUE [None]
  - MALNUTRITION [None]
  - PANCYTOPENIA [None]
  - PETECHIAE [None]
